FAERS Safety Report 23474532 (Version 6)
Quarter: 2025Q3

REPORT INFORMATION
  Report Type: Report from Study
  Country: TH (occurrence: TH)
  Receive Date: 20240204
  Receipt Date: 20250919
  Transmission Date: 20251020
  Serious: Yes (Death, Hospitalization, Other)
  Sender: EXELIXIS
  Company Number: TH-IPSEN Group, Research and Development-2023-08438

PATIENT
  Age: 42 Year
  Sex: Female

DRUGS (5)
  1. CABOMETYX [Suspect]
     Active Substance: CABOZANTINIB S-MALATE
     Indication: Renal cell carcinoma
     Dosage: 60 MG, QD
     Route: 048
     Dates: start: 20230322
  2. CABOMETYX [Suspect]
     Active Substance: CABOZANTINIB S-MALATE
     Dosage: 60 MG EVERY OTHER DAY
     Route: 048
     Dates: start: 20230405
  3. CABOMETYX [Suspect]
     Active Substance: CABOZANTINIB S-MALATE
     Dosage: 40 MG ONCE DAILY
     Route: 048
     Dates: start: 20230420
  4. CABOMETYX [Suspect]
     Active Substance: CABOZANTINIB S-MALATE
     Dosage: 60 MG DAILY
     Route: 048
     Dates: start: 20240201
  5. CABOMETYX [Suspect]
     Active Substance: CABOZANTINIB S-MALATE
     Dosage: 60 MG EVERY OTHER DAY
     Route: 048
     Dates: start: 20250713

REACTIONS (12)
  - Abscess limb [Unknown]
  - Neoplasm malignant [Fatal]
  - Malignant neoplasm progression [Unknown]
  - Diarrhoea [Unknown]
  - COVID-19 [Unknown]
  - Nausea [Recovering/Resolving]
  - Vomiting [Recovering/Resolving]
  - Fatigue [Recovering/Resolving]
  - Decreased appetite [Recovering/Resolving]
  - Product administration interrupted [Unknown]
  - Off label use [Unknown]
  - Off label use [Unknown]

NARRATIVE: CASE EVENT DATE: 20230405
